FAERS Safety Report 8845789 (Version 3)
Quarter: 2014Q2

REPORT INFORMATION
  Report Type: Spontaneous
  Country: US (occurrence: US)
  Receive Date: 20121017
  Receipt Date: 20131018
  Transmission Date: 20141212
  Serious: Yes (Other)
  Sender: FDA-Public Use
  Company Number: US-PFIZER INC-2012258062

PATIENT
  Age: 30 Year
  Sex: Male
  Weight: 89.8 kg

DRUGS (1)
  1. DILANTIN-125 [Suspect]
     Indication: POST-TRAUMATIC EPILEPSY
     Dosage: 100 MG, 3X/DAY
     Dates: start: 1974

REACTIONS (5)
  - Tooth infection [Unknown]
  - Gingival disorder [Unknown]
  - Gingival recession [Unknown]
  - Hair growth abnormal [Unknown]
  - Therapeutic response changed [Unknown]
